FAERS Safety Report 16289682 (Version 1)
Quarter: 2019Q2

REPORT INFORMATION
  Report Type: Spontaneous
  Country: US (occurrence: US)
  Receive Date: 20190509
  Receipt Date: 20190509
  Transmission Date: 20190711
  Serious: Yes (Other)
  Sender: FDA-Public Use
  Company Number: US-TEVA-2019-US-1046752

PATIENT
  Age: 40 Year
  Sex: Male

DRUGS (7)
  1. ISOTRETINOIN. [Suspect]
     Active Substance: ISOTRETINOIN
     Indication: SKIN PAPILLOMA
     Route: 065
  2. MYCOPHENOLATE MOFETIL. [Suspect]
     Active Substance: MYCOPHENOLATE MOFETIL
     Indication: IMMUNOSUPPRESSANT DRUG THERAPY
     Route: 065
  3. SINECATECHINS [Suspect]
     Active Substance: SINECATECHINS
     Indication: SKIN PAPILLOMA
     Route: 065
  4. TACROLIMUS. [Suspect]
     Active Substance: TACROLIMUS
     Indication: IMMUNOSUPPRESSANT DRUG THERAPY
     Route: 065
  5. IMIQUIMOD. [Suspect]
     Active Substance: IMIQUIMOD
     Indication: SKIN PAPILLOMA
     Route: 065
  6. PREDNISONE. [Suspect]
     Active Substance: PREDNISONE
     Indication: IMMUNOSUPPRESSANT DRUG THERAPY
     Route: 065
  7. CANDIDA IMMUNOTHERAPY [Suspect]
     Active Substance: INVESTIGATIONAL PRODUCT
     Indication: SKIN PAPILLOMA
     Dosage: 0.2 CC; INITIAL DOSAGE NOT STATED
     Route: 065

REACTIONS (4)
  - Xerosis [Unknown]
  - Skin papilloma [Recovering/Resolving]
  - Cheilitis [Unknown]
  - Drug ineffective [Unknown]
